FAERS Safety Report 18987393 (Version 2)
Quarter: 2021Q1

REPORT INFORMATION
  Report Type: Spontaneous
  Country: US (occurrence: US)
  Receive Date: 20210309
  Receipt Date: 20210312
  Transmission Date: 20210420
  Serious: No
  Sender: FDA-Public Use
  Company Number: US-BIOGEN-2021BI00988030

PATIENT
  Sex: Female

DRUGS (1)
  1. TECFIDERA [Suspect]
     Active Substance: DIMETHYL FUMARATE
     Indication: MULTIPLE SCLEROSIS
     Route: 048
     Dates: start: 20170113, end: 20210218

REACTIONS (5)
  - Hot flush [Unknown]
  - Flushing [Unknown]
  - Hyperhidrosis [Unknown]
  - Dysphonia [Unknown]
  - Feeling hot [Unknown]
